FAERS Safety Report 4488772-1 (Version None)
Quarter: 2004Q4

REPORT INFORMATION
  Report Type: 
  Country: None (occurrence: None)
  Receive Date: 20041029
  Receipt Date: 20041019
  Transmission Date: 20050328
  Serious: Yes (Life-Threatening, Hospitalization, Other)
  Sender: FDA-Public Use
  Company Number: CA-JNJFOC-20041006144

PATIENT
  Age: 37 Year
  Sex: Male

DRUGS (2)
  1. REMICADE [Suspect]
     Indication: CROHN'S DISEASE
     Route: 042
     Dates: start: 20010101, end: 20041005
  2. IMMUNOSUPRESSANTS [Concomitant]
     Indication: CROHN'S DISEASE

REACTIONS (2)
  - METASTASES TO LIVER [None]
  - NEUROENDOCRINE TUMOUR [None]
